FAERS Safety Report 4935636-2 (Version None)
Quarter: 2006Q1

REPORT INFORMATION
  Report Type: 
  Country: None (occurrence: None)
  Receive Date: 20060307
  Receipt Date: 20051003
  Transmission Date: 20060701
  Serious: No
  Sender: FDA-Public Use
  Company Number: US-GLAXOSMITHKLINE-A0576678A

PATIENT
  Age: 75 Year
  Sex: Male

DRUGS (5)
  1. REQUIP [Suspect]
     Indication: PARKINSON'S DISEASE
     Dosage: 3MG THREE TIMES PER DAY
     Route: 048
  2. LIPITOR [Concomitant]
  3. ZETIA [Concomitant]
  4. COENZYME Q10 [Concomitant]
  5. MULTI-VITAMIN [Concomitant]

REACTIONS (1)
  - MALAISE [None]
